FAERS Safety Report 9473556 (Version 2)
Quarter: 2015Q4

REPORT INFORMATION
  Report Type: Spontaneous
  Country: US (occurrence: US)
  Receive Date: 20130823
  Receipt Date: 20151223
  Transmission Date: 20160305
  Serious: Yes (Hospitalization, Other)
  Sender: FDA-Public Use
  Company Number: US-BAYER-2013-101757

PATIENT
  Age: 32 Year
  Sex: Female

DRUGS (8)
  1. NASACORT AQ [Concomitant]
     Active Substance: TRIAMCINOLONE ACETONIDE
     Dosage: UNK
     Route: 045
     Dates: start: 20060913
  2. CELEXA [Concomitant]
     Active Substance: CITALOPRAM HYDROBROMIDE
     Dosage: UNK
     Dates: start: 20070102
  3. MINERALS NOS [Concomitant]
     Active Substance: MINERALS
     Dosage: UNK
     Dates: start: 20070102
  4. PROMETHAZINE W/CODEINE [Concomitant]
     Dosage: UNK
     Dates: start: 20061207
  5. CITALOPRAM HYDROBROMIDE. [Concomitant]
     Active Substance: CITALOPRAM HYDROBROMIDE
     Dosage: UNK
     Dates: start: 20061029
  6. AZITHROMYCIN [Concomitant]
     Active Substance: AZITHROMYCIN ANHYDROUS
     Dosage: UNK
     Dates: start: 20061207
  7. VALIUM [Concomitant]
     Active Substance: DIAZEPAM
     Dosage: UNK
     Dates: start: 20070102
  8. YAZ [Suspect]
     Active Substance: DROSPIRENONE\ETHINYL ESTRADIOL
     Dosage: UNK

REACTIONS (3)
  - Cerebrovascular accident [None]
  - Embolism arterial [None]
  - Cerebellar infarction [None]

NARRATIVE: CASE EVENT DATE: 20070102
